FAERS Safety Report 15833251 (Version 1)
Quarter: 2019Q1

REPORT INFORMATION
  Report Type: Spontaneous
  Country: US (occurrence: US)
  Receive Date: 20190116
  Receipt Date: 20190116
  Transmission Date: 20190417
  Serious: Yes (Other)
  Sender: FDA-Public Use
  Company Number: None

PATIENT
  Age: 80 Year
  Sex: Female
  Weight: 57.9 kg

DRUGS (1)
  1. MILRENONE, 20 MG [Suspect]
     Active Substance: MILRINONE
     Indication: RESPIRATORY FAILURE
     Route: 041

REACTIONS (2)
  - Incorrect dose administered [None]
  - Hypotension [None]

NARRATIVE: CASE EVENT DATE: 20190115
